FAERS Safety Report 8433671 (Version 2)
Quarter: 2013Q1

REPORT INFORMATION
  Report Type: Spontaneous
  Country: US (occurrence: US)
  Receive Date: 20120229
  Receipt Date: 20130227
  Transmission Date: 20140127
  Serious: No
  Sender: FDA-Public Use
  Company Number: US-GLAXOSMITHKLINE-A0930060A

PATIENT
  Age: 32 Year
  Sex: Female
  Weight: 88.6 kg

DRUGS (14)
  1. VALTREX [Suspect]
     Indication: HERPES VIRUS INFECTION
     Dosage: 500MG PER DAY
     Route: 048
     Dates: start: 2003
  2. CELEBREX [Concomitant]
  3. FLEXERIL [Concomitant]
     Indication: MUSCLE SPASMS
     Dosage: 10MG THREE TIMES PER DAY
     Route: 048
     Dates: start: 20110322, end: 20110601
  4. CHANTIX [Concomitant]
  5. LORATADINE [Concomitant]
     Indication: RHINITIS ALLERGIC
     Dosage: 10MG AS REQUIRED
     Route: 048
     Dates: end: 20100601
  6. NEXIUM [Concomitant]
     Indication: GASTROOESOPHAGEAL REFLUX DISEASE
     Dates: start: 20110107, end: 20110601
  7. VITAMINS [Concomitant]
  8. FLONASE [Concomitant]
  9. LYRICA [Concomitant]
     Indication: FIBROMYALGIA
     Dosage: 100MG TWICE PER DAY
     Route: 048
     Dates: start: 20100209, end: 20110607
  10. VICODIN [Concomitant]
     Indication: PAIN IN EXTREMITY
     Route: 048
     Dates: start: 20110507, end: 20110607
  11. TOPAMAX [Concomitant]
     Indication: HEADACHE
     Route: 048
     Dates: end: 20110601
  12. TRAMADOL [Concomitant]
     Indication: PAIN
     Dosage: 50MG AS REQUIRED
     Route: 048
     Dates: start: 20110205, end: 20110601
  13. RELPAX [Concomitant]
     Indication: MIGRAINE
     Dosage: 40MG AS REQUIRED
     Route: 048
     Dates: start: 20100209, end: 20110601
  14. GLYBURIDE [Concomitant]
     Indication: GESTATIONAL DIABETES
     Route: 048
     Dates: start: 20111123, end: 20120206

REACTIONS (2)
  - Live birth [Unknown]
  - Exposure during pregnancy [Unknown]
